FAERS Safety Report 10163638 (Version 3)
Quarter: 2014Q3

REPORT INFORMATION
  Report Type: Report from Study
  Country: DE (occurrence: NL)
  Receive Date: 20140509
  Receipt Date: 20140822
  Transmission Date: 20150326
  Serious: Yes (Hospitalization, Other)
  Sender: FDA-Public Use
  Company Number: DE-ACTELION-A-US2008-98267

PATIENT
  Age: 55 Year
  Sex: Female

DRUGS (1)
  1. VENTAVIS [Suspect]
     Active Substance: ILOPROST
     Indication: PRODUCT USED FOR UNKNOWN INDICATION
     Dosage: UNK
     Route: 055

REACTIONS (14)
  - Pulmonary hypertension [Unknown]
  - Respiratory tract infection [Unknown]
  - Device misuse [Unknown]
  - Nasopharyngitis [Unknown]
  - Influenza like illness [Recovering/Resolving]
  - Arrhythmia [Recovering/Resolving]
  - Wrong technique in drug usage process [Unknown]
  - Fatigue [Unknown]
  - Secretion discharge [Unknown]
  - Productive cough [Recovering/Resolving]
  - Eye operation [Unknown]
  - Lung transplant [Recovering/Resolving]
  - Pneumonia [Unknown]
  - Feeling abnormal [Unknown]

NARRATIVE: CASE EVENT DATE: 2008
